FAERS Safety Report 7058647-2 (Version None)
Quarter: 2010Q4

REPORT INFORMATION
  Report Type: 
  Country: None (occurrence: None)
  Receive Date: 20101022
  Receipt Date: 20101018
  Transmission Date: 20110411
  Serious: Yes (Death, Other)
  Sender: FDA-Public Use
  Company Number: PHHY2010ZA67529

PATIENT

DRUGS (1)
  1. GLEEVEC [Suspect]
     Indication: CHRONIC MYELOID LEUKAEMIA
     Dosage: 600 MG, UNK

REACTIONS (9)
  - ALLOGENIC BONE MARROW TRANSPLANTATION THERAPY [None]
  - BLAST CRISIS IN MYELOGENOUS LEUKAEMIA [None]
  - CEREBRAL HAEMORRHAGE [None]
  - DRUG INEFFECTIVE [None]
  - GENE MUTATION IDENTIFICATION TEST POSITIVE [None]
  - HEMIPARESIS [None]
  - METASTASES TO BONE [None]
  - PNEUMONIA ASPIRATION [None]
  - PULMONARY EMBOLISM [None]
